FAERS Safety Report 17224954 (Version 1)
Quarter: 2019Q4

REPORT INFORMATION
  Report Type: Spontaneous
  Country: US (occurrence: US)
  Receive Date: 20191209
  Receipt Date: 20191209
  Transmission Date: 20200122
  Serious: Yes (Hospitalization)
  Sender: FDA-Public Use
  Company Number: None

PATIENT
  Sex: Female

DRUGS (19)
  1. ASPIRIN CHLD [Concomitant]
  2. COLACE [Concomitant]
     Active Substance: DOCUSATE SODIUM
  3. MIRALAX [Concomitant]
     Active Substance: POLYETHYLENE GLYCOL 3350
  4. BENLYSTA [Suspect]
     Active Substance: BELIMUMAB
     Indication: SYSTEMIC LUPUS ERYTHEMATOSUS
     Route: 058
     Dates: start: 20160220
  5. VITAMIN B12 [Concomitant]
     Active Substance: CYANOCOBALAMIN
  6. NOVOLOG [Concomitant]
     Active Substance: INSULIN ASPART
  7. VITAMIN D [Concomitant]
     Active Substance: VITAMIN D NOS
  8. FLUTUCASONE [Concomitant]
  9. LOSARTAN POT [Concomitant]
     Active Substance: LOSARTAN POTASSIUM
  10. TYLENOL [Concomitant]
     Active Substance: ACETAMINOPHEN
  11. CARVEDIOL [Concomitant]
     Active Substance: CARVEDILOL
  12. LANTUS SOLOS [Concomitant]
  13. PANTOPRAZOLE [Concomitant]
     Active Substance: PANTOPRAZOLE
  14. PRALUENT [Concomitant]
     Active Substance: ALIROCUMAB
  15. EZETIMBE [Concomitant]
     Active Substance: EZETIMIBE
  16. METFORMIN [Concomitant]
     Active Substance: METFORMIN HYDROCHLORIDE
  17. TRULICITY [Concomitant]
     Active Substance: DULAGLUTIDE
  18. BRILINTA [Concomitant]
     Active Substance: TICAGRELOR
  19. MONTELUKAST [Concomitant]
     Active Substance: MONTELUKAST SODIUM

REACTIONS (1)
  - Myocardial infarction [None]
